FAERS Safety Report 9158139 (Version 1)
Quarter: 2013Q1

REPORT INFORMATION
  Report Type: Spontaneous
  Country: US (occurrence: US)
  Receive Date: 20130312
  Receipt Date: 20130312
  Transmission Date: 20140127
  Serious: Yes (Other)
  Sender: FDA-Public Use
  Company Number: US-NOVOPROD-372496

PATIENT
  Age: 60 Year
  Sex: Female
  Weight: 108.84 kg

DRUGS (4)
  1. VICTOZA [Suspect]
     Indication: TYPE 2 DIABETES MELLITUS
     Dosage: 1.8 MG, QD
     Route: 058
  2. VICTOZA [Suspect]
     Dosage: UNKNOWN
  3. METFORMIN [Concomitant]
     Indication: TYPE 2 DIABETES MELLITUS
     Dosage: 1000 MG, BID
     Route: 048
  4. METFORMIN [Concomitant]
     Dosage: 500 MG, QD
     Route: 048

REACTIONS (3)
  - Gastroenteritis viral [Recovering/Resolving]
  - Urinary tract infection [Recovering/Resolving]
  - Blood glucose decreased [Recovered/Resolved]
